FAERS Safety Report 4337483-1 (Version None)
Quarter: 2004Q2

REPORT INFORMATION
  Report Type: 
  Country: None (occurrence: None)
  Receive Date: 20040413
  Receipt Date: 20040401
  Transmission Date: 20050107
  Serious: Yes (Hospitalization)
  Sender: FDA-Public Use
  Company Number: US-BRISTOL-MYERS SQUIBB COMPANY-12548822

PATIENT
  Sex: Male

DRUGS (1)
  1. ATAZANAVIR CAPS [Suspect]
     Indication: HIV INFECTION
     Dosage: WITH HELD ON 30-MAR-2004 RESTART DATE NOT PROVIDED
     Route: 048
     Dates: start: 20031101

REACTIONS (4)
  - ALANINE AMINOTRANSFERASE INCREASED [None]
  - ASPARTATE AMINOTRANSFERASE INCREASED [None]
  - ASTHENIA [None]
  - BLOOD CREATINE PHOSPHOKINASE INCREASED [None]
